FAERS Safety Report 4916027-7 (Version None)
Quarter: 2006Q1

REPORT INFORMATION
  Report Type: 
  Country: None (occurrence: None)
  Receive Date: 20060214
  Receipt Date: 20060206
  Transmission Date: 20060701
  Serious: Yes (Hospitalization)
  Sender: FDA-Public Use
  Company Number: 200610715BWH

PATIENT

DRUGS (1)
  1. NEXAVAR [Suspect]

REACTIONS (1)
  - ABASIA [None]
